FAERS Safety Report 5449746-7 (Version None)
Quarter: 2007Q3

REPORT INFORMATION
  Report Type: 
  Country: None (occurrence: None)
  Receive Date: 20070907
  Receipt Date: 20070907
  Transmission Date: 20080115
  Serious: Yes (Hospitalization)
  Sender: FDA-Public Use
  Company Number: None

PATIENT
  Sex: Female
  Weight: 65.7716 kg

DRUGS (6)
  1. XELODA [Suspect]
     Indication: METASTASES TO LIVER
     Dosage: 500MG  BID  PO
     Route: 048
     Dates: start: 20070717, end: 20070722
  2. ZOCOR [Concomitant]
  3. ATENOLOL [Concomitant]
  4. SYNTHROID [Concomitant]
  5. DETROL [Concomitant]
  6. NORVASC [Concomitant]

REACTIONS (3)
  - ANOREXIA [None]
  - ASTHENIA [None]
  - CONFUSIONAL STATE [None]
